FAERS Safety Report 4997194-6 (Version None)
Quarter: 2006Q2

REPORT INFORMATION
  Report Type: 
  Country: None (occurrence: None)
  Receive Date: 20060505
  Receipt Date: 20060505
  Transmission Date: 20061013
  Serious: No
  Sender: FDA-Public Use
  Company Number: None

PATIENT
  Sex: Female
  Weight: 83.9154 kg

DRUGS (2)
  1. CYMBALTA [Suspect]
     Indication: DEPRESSION
     Dosage: 1 TABLET PER DAY PO
     Route: 048
     Dates: start: 20060404, end: 20060411
  2. CYMBALTA [Suspect]
     Dosage: 1 TABLET PER DAY PO
     Dates: start: 20060410, end: 20060424

REACTIONS (7)
  - DISTURBANCE IN ATTENTION [None]
  - DRUG WITHDRAWAL SYNDROME [None]
  - FEELING ABNORMAL [None]
  - NIGHT SWEATS [None]
  - NIGHTMARE [None]
  - TINNITUS [None]
  - VISUAL DISTURBANCE [None]
